FAERS Safety Report 5122756-5 (Version None)
Quarter: 2006Q4

REPORT INFORMATION
  Report Type: 
  Country: None (occurrence: None)
  Receive Date: 20061004
  Receipt Date: 20060925
  Transmission Date: 20070319
  Serious: Yes (Death)
  Sender: FDA-Public Use
  Company Number: 14835

PATIENT
  Age: 61 Year
  Sex: Female

DRUGS (2)
  1. METHOTREXATE [Suspect]
     Indication: RHEUMATOID ARTHRITIS
     Dosage: 25 MG 2/WK
     Dates: start: 19990101
  2. ENBREL [Suspect]
     Indication: RHEUMATOID ARTHRITIS
     Dosage: 25 MG 2/WK SC
     Route: 058

REACTIONS (7)
  - ARRHYTHMIA [None]
  - BACTERIAL INFECTION [None]
  - INTERSTITIAL LUNG DISEASE [None]
  - METABOLIC ACIDOSIS [None]
  - PNEUMOCYSTIS JIROVECI INFECTION [None]
  - RENAL FAILURE [None]
  - TUBERCULOSIS [None]
